FAERS Safety Report 6744207-7 (Version None)
Quarter: 2010Q2

REPORT INFORMATION
  Report Type: 
  Country: None (occurrence: None)
  Receive Date: 20100527
  Receipt Date: 20100520
  Transmission Date: 20101027
  Serious: Yes (Hospitalization)
  Sender: FDA-Public Use
  Company Number: GXKR2010ES05724

PATIENT
  Sex: Female

DRUGS (2)
  1. CARBOPLATIN [Suspect]
     Indication: SMALL CELL LUNG CANCER STAGE UNSPECIFIED
     Dosage: 186 MG DAY 1+ 186 MG DAY 8
     Route: 042
     Dates: start: 20100330
  2. IRINOTECAN [Concomitant]
     Indication: SMALL CELL LUNG CANCER STAGE UNSPECIFIED
     Dosage: 80 MG DAY 1+ 80 MG DAY 8
     Route: 042
     Dates: start: 20100330

REACTIONS (3)
  - ANAEMIA [None]
  - NEUTROPENIA [None]
  - OESOPHAGITIS [None]
